FAERS Safety Report 19787018 (Version 1)
Quarter: 2021Q3

REPORT INFORMATION
  Report Type: Report from Study
  Country: GB (occurrence: GB)
  Receive Date: 20210903
  Receipt Date: 20210903
  Transmission Date: 20211014
  Serious: Yes (Hospitalization)
  Sender: FDA-Public Use
  Company Number: GB-TEVA-2021-GB-1950186

PATIENT
  Age: 31 Year
  Sex: Female

DRUGS (4)
  1. PROPANLOL [Concomitant]
  2. CITALOPRAM [Concomitant]
     Active Substance: CITALOPRAM HYDROBROMIDE
  3. COPAXONE [Suspect]
     Active Substance: GLATIRAMER ACETATE
     Indication: MULTIPLE SCLEROSIS
     Route: 058
     Dates: start: 202009, end: 20210825
  4. IRON [Concomitant]
     Active Substance: IRON

REACTIONS (6)
  - Pharyngeal swelling [Recovering/Resolving]
  - Body temperature increased [Unknown]
  - Dyspnoea [Recovering/Resolving]
  - Tremor [Recovered/Resolved]
  - Fatigue [Unknown]
  - Swelling face [Recovering/Resolving]

NARRATIVE: CASE EVENT DATE: 202108
